FAERS Safety Report 6581788-0 (Version None)
Quarter: 2010Q1

REPORT INFORMATION
  Report Type: 
  Country: None (occurrence: None)
  Receive Date: 20100215
  Receipt Date: 20100210
  Transmission Date: 20100710
  Serious: Yes (Death)
  Sender: FDA-Public Use
  Company Number: PHHY2010AR07423

PATIENT
  Sex: Female

DRUGS (1)
  1. DIOVAN [Suspect]
     Indication: BLOOD PRESSURE
     Dosage: 80 MG DAILY
     Dates: start: 20091001

REACTIONS (3)
  - FALL [None]
  - HIP FRACTURE [None]
  - POSTURE ABNORMAL [None]
